FAERS Safety Report 11450299 (Version 1)
Quarter: 2015Q3

REPORT INFORMATION
  Report Type: Spontaneous
  Country: US (occurrence: None)
  Receive Date: 20150901
  Receipt Date: 20150901
  Transmission Date: 20151125
  Serious: Yes (Other)
  Sender: FDA-Public Use
  Company Number: COL_20529_2015

PATIENT
  Age: 74 Year
  Sex: Female

DRUGS (2)
  1. COLGATE TOTAL WHITENING [Suspect]
     Active Substance: SILICON DIOXIDE\SODIUM FLUORIDE\TRICLOSAN
     Indication: PRODUCT USED FOR UNKNOWN INDICATION
     Dosage: ENOUGH TO COVER THE BRUSH
     Route: 048
     Dates: start: 20150817, end: 20150817
  2. BLOOD PRESSURE PILLS [Concomitant]
     Active Substance: UNSPECIFIED INGREDIENT

REACTIONS (4)
  - Lip swelling [None]
  - Swollen tongue [None]
  - Hypersensitivity [None]
  - Hypoaesthesia oral [None]

NARRATIVE: CASE EVENT DATE: 20150817
